FAERS Safety Report 6071525-0 (Version None)
Quarter: 2009Q1

REPORT INFORMATION
  Report Type: 
  Country: None (occurrence: None)
  Receive Date: 20090209
  Receipt Date: 20090209
  Transmission Date: 20090719
  Serious: Yes (Hospitalization)
  Sender: FDA-Public Use
  Company Number: None

PATIENT
  Sex: Male
  Weight: 143 kg

DRUGS (3)
  1. FLUOROURACIL [Suspect]
     Dosage: 5600 MG
  2. LEUCOVORIN CALCIUM [Suspect]
     Dosage: 800 MG
  3. ELOXATIN [Suspect]
     Dosage: 170 MG

REACTIONS (11)
  - ABDOMINAL PAIN [None]
  - BLOOD LACTIC ACID INCREASED [None]
  - DEHYDRATION [None]
  - MUSCULAR WEAKNESS [None]
  - NAUSEA [None]
  - NEUROPATHY PERIPHERAL [None]
  - PARAESTHESIA [None]
  - POST PROCEDURAL COMPLICATION [None]
  - RADIATION INJURY [None]
  - SPINAL OSTEOARTHRITIS [None]
  - VOMITING [None]
